FAERS Safety Report 12203418 (Version 1)
Quarter: 2016Q1

REPORT INFORMATION
  Report Type: Spontaneous
  Country: US (occurrence: US)
  Receive Date: 20160323
  Receipt Date: 20160323
  Transmission Date: 20160526
  Serious: No
  Sender: FDA-Public Use
  Company Number: US-BAYER-2016-047265

PATIENT
  Age: 78 Year
  Sex: Female
  Weight: 43.84 kg

DRUGS (1)
  1. MIRALAX [Suspect]
     Active Substance: POLYETHYLENE GLYCOL 3350
     Indication: CONSTIPATION
     Dosage: 1 DF, ONCE
     Route: 048
     Dates: start: 201603

REACTIONS (5)
  - Discomfort [None]
  - Drug ineffective [None]
  - Nausea [None]
  - Decreased appetite [None]
  - Abdominal pain lower [None]
